FAERS Safety Report 19779128 (Version 2)
Quarter: 2021Q4

REPORT INFORMATION
  Report Type: Spontaneous
  Country: IT (occurrence: IT)
  Receive Date: 20210902
  Receipt Date: 20211008
  Transmission Date: 20220303
  Serious: Yes (Other)
  Sender: FDA-Public Use
  Company Number: IT-MINISAL02-774295

PATIENT
  Age: 29 Year
  Sex: Female

DRUGS (1)
  1. SERTRALINE [Suspect]
     Active Substance: SERTRALINE HYDROCHLORIDE
     Indication: Intentional self-injury
     Dosage: 900 MILLIGRAM, TOTAL
     Route: 048
     Dates: start: 20210819, end: 20210819

REACTIONS (5)
  - Drug abuse [Recovering/Resolving]
  - Confusional state [Recovering/Resolving]
  - Bradyphrenia [Recovering/Resolving]
  - Bradykinesia [Recovering/Resolving]
  - Intentional self-injury [Unknown]

NARRATIVE: CASE EVENT DATE: 20210819
